FAERS Safety Report 7287551-X (Version None)
Quarter: 2011Q1

REPORT INFORMATION
  Report Type: 
  Country: None (occurrence: None)
  Receive Date: 20110208
  Receipt Date: 20110208
  Transmission Date: 20110831
  Serious: No
  Sender: FDA-Public Use
  Company Number: None

PATIENT
  Age: 35 Year
  Sex: Female

DRUGS (2)
  1. SENSORCAINE [Suspect]
     Dosage: 1.6ML ONCE INTRATHECAL
     Route: 037
  2. SENSORCAINE [Suspect]
     Indication: CAESAREAN SECTION
     Dosage: 1.6ML ONCE INTRATHECAL
     Route: 037
     Dates: start: 20110106

REACTIONS (1)
  - DRUG INEFFECTIVE [None]
